FAERS Safety Report 8535376-7 (Version None)
Quarter: 2012Q3

REPORT INFORMATION
  Report Type: 
  Country: None (occurrence: None)
  Receive Date: 20120725
  Receipt Date: 20120718
  Transmission Date: 20120928
  Serious: No
  Sender: FDA-Public Use
  Company Number: US-BIOGENIDEC-2012BI026583

PATIENT
  Age: 39 Year
  Sex: Female

DRUGS (2)
  1. TYSABRI [Suspect]
     Indication: MULTIPLE SCLEROSIS
     Route: 042
     Dates: start: 20070221, end: 20120117
  2. TYSABRI [Suspect]
     Route: 042
     Dates: start: 20120710

REACTIONS (2)
  - PRURITUS ALLERGIC [None]
  - CEREBRAL ATROPHY [None]
